FAERS Safety Report 9292169 (Version 1)
Quarter: 2013Q2

REPORT INFORMATION
  Report Type: Spontaneous
  Country: CA (occurrence: CA)
  Receive Date: 20130516
  Receipt Date: 20130516
  Transmission Date: 20140414
  Serious: Yes (Other)
  Sender: FDA-Public Use
  Company Number: CA-JNJFOC-20130503640

PATIENT
  Age: 62 Year
  Sex: Female
  Weight: 47.3 kg

DRUGS (3)
  1. DOXORUBICIN HYDROCHLORIDE(CAELYX) [Suspect]
     Indication: FALLOPIAN TUBE CANCER
     Dosage: 54 MG, FIRST DOSE
     Route: 042
     Dates: start: 20130502, end: 20130502
  2. DEXAMETHASONE [Concomitant]
     Dosage: ADMINISTERED 1 HOUR PRIOR TO CHEMOTHERAPY
     Route: 048
     Dates: start: 20130502
  3. ZOFRAN [Concomitant]
     Dosage: ADMINISTERED 1 HOUR PRIOR TO CHEMOTHERAPY
     Route: 048
     Dates: start: 20130502

REACTIONS (6)
  - Angioedema [Not Recovered/Not Resolved]
  - Scleral discolouration [Not Recovered/Not Resolved]
  - Infusion related reaction [Not Recovered/Not Resolved]
  - Ocular hyperaemia [Not Recovered/Not Resolved]
  - Dysphonia [Not Recovered/Not Resolved]
  - Urticaria [Not Recovered/Not Resolved]
